FAERS Safety Report 23151235 (Version 1)
Quarter: 2023Q4

REPORT INFORMATION
  Report Type: Report from Study
  Country: US (occurrence: US)
  Receive Date: 20231106
  Receipt Date: 20231106
  Transmission Date: 20240110
  Serious: No
  Sender: FDA-Public Use
  Company Number: US-ACADIA PHARMACEUTICALS INC.-ACA-2023-TRF-004779

PATIENT
  Age: 44 Year
  Sex: Female
  Weight: 33.107 kg

DRUGS (2)
  1. DAYBUE [Suspect]
     Active Substance: TROFINETIDE
     Dosage: 15 MILLILITER FOR 2 WEEKS
     Route: 065
     Dates: start: 20230922
  2. DAYBUE [Suspect]
     Active Substance: TROFINETIDE
     Dosage: 30 MILLILITER (FOR NEXT 2 WEESK)
     Route: 065

REACTIONS (1)
  - Frequent bowel movements [Unknown]
